FAERS Safety Report 8575889-5 (Version None)
Quarter: 2012Q3

REPORT INFORMATION
  Report Type: 
  Country: None (occurrence: None)
  Receive Date: 20120807
  Receipt Date: 20120727
  Transmission Date: 20120928
  Serious: Yes (Hospitalization)
  Sender: FDA-Public Use
  Company Number: US-BAYER-2011-093922

PATIENT
  Age: 42 Year
  Sex: Female
  Weight: 83.9 kg

DRUGS (2)
  1. NAPROXEN [Concomitant]
     Dosage: UNK
     Route: 048
     Dates: start: 20060101
  2. YAZ [Suspect]
     Indication: DYSFUNCTIONAL UTERINE BLEEDING
     Dosage: UNK
     Dates: start: 20060508, end: 20060629

REACTIONS (6)
  - ANXIETY [None]
  - DEEP VEIN THROMBOSIS [None]
  - PAIN [None]
  - INJURY [None]
  - PSYCHOLOGICAL TRAUMA [None]
  - EMOTIONAL DISTRESS [None]
